FAERS Safety Report 13898113 (Version 2)
Quarter: 2017Q4

REPORT INFORMATION
  Report Type: Spontaneous
  Country: US (occurrence: US)
  Receive Date: 20170823
  Receipt Date: 20171120
  Transmission Date: 20180320
  Serious: Yes (Hospitalization, Other)
  Sender: FDA-Public Use
  Company Number: US-VISTAPHARM, INC.-VER201708-000363

PATIENT
  Age: 71 Year
  Sex: Male
  Weight: 80 kg

DRUGS (10)
  1. LEVETIRACETAM. [Concomitant]
     Active Substance: LEVETIRACETAM
     Indication: CRANIOCEREBRAL INJURY
  2. PHENYTOIN. [Suspect]
     Active Substance: PHENYTOIN
     Route: 040
  3. PHENYTOIN. [Suspect]
     Active Substance: PHENYTOIN
     Route: 040
  4. PHENYTOIN. [Suspect]
     Active Substance: PHENYTOIN
     Route: 040
  5. PHENYTOIN. [Suspect]
     Active Substance: PHENYTOIN
  6. PHENYTOIN. [Suspect]
     Active Substance: PHENYTOIN
  7. PHENYTOIN. [Suspect]
     Active Substance: PHENYTOIN
  8. PHENYTOIN. [Suspect]
     Active Substance: PHENYTOIN
     Indication: SEIZURE
     Route: 040
  9. PHENYTOIN. [Suspect]
     Active Substance: PHENYTOIN
     Route: 040
  10. LEVETIRACETAM. [Concomitant]
     Active Substance: LEVETIRACETAM
     Indication: SEIZURE

REACTIONS (1)
  - Purple glove syndrome [Recovered/Resolved]
